FAERS Safety Report 23390751 (Version 1)
Quarter: 2024Q1

REPORT INFORMATION
  Report Type: Spontaneous
  Country: DE (occurrence: DE)
  Receive Date: 20240111
  Receipt Date: 20240111
  Transmission Date: 20240409
  Serious: Yes (Death, Hospitalization, Other)
  Sender: FDA-Public Use
  Company Number: DE-SANDOZ-SDZ2024DE002922

PATIENT
  Age: 88 Year
  Sex: Female

DRUGS (2)
  1. METHOTREXATE [Suspect]
     Active Substance: METHOTREXATE
     Indication: Psoriasis
     Dosage: 15 DOSE MG/WEEKLY
     Route: 065
  2. TORSEMIDE [Concomitant]
     Active Substance: TORSEMIDE
     Indication: Product used for unknown indication
     Route: 065

REACTIONS (5)
  - Sepsis [Fatal]
  - Myelosuppression [Fatal]
  - Leukopenia [Fatal]
  - Thrombocytopenia [Fatal]
  - Mucosal inflammation [Fatal]
